FAERS Safety Report 6687919-6 (Version None)
Quarter: 2010Q2

REPORT INFORMATION
  Report Type: 
  Country: None (occurrence: None)
  Receive Date: 20100420
  Receipt Date: 20100415
  Transmission Date: 20101027
  Serious: Yes (Hospitalization, Other)
  Sender: FDA-Public Use
  Company Number: US-ASTRAZENECA-2008UW27424

PATIENT
  Age: 46 Year
  Sex: Female
  Weight: 85.3 kg

DRUGS (4)
  1. SEROQUEL [Suspect]
     Indication: DEPRESSION
     Route: 048
     Dates: start: 19990101, end: 20020101
  2. ABILIFY [Concomitant]
  3. RISPERDAL [Concomitant]
  4. ZYPREXA [Concomitant]

REACTIONS (5)
  - DIABETES MELLITUS [None]
  - PAIN IN EXTREMITY [None]
  - PNEUMONIA [None]
  - SPINAL DISORDER [None]
  - TYPE 2 DIABETES MELLITUS [None]
